FAERS Safety Report 12378542 (Version 1)
Quarter: 2016Q2

REPORT INFORMATION
  Report Type: Spontaneous
  Country: US (occurrence: US)
  Receive Date: 20160517
  Receipt Date: 20160517
  Transmission Date: 20160815
  Serious: No
  Sender: FDA-Public Use
  Company Number: US-RELYPSA-RLY2016000212

PATIENT

DRUGS (14)
  1. LASIX [Concomitant]
     Active Substance: FUROSEMIDE
  2. LISINOPRIL. [Concomitant]
     Active Substance: LISINOPRIL
  3. SODIUM BICARBONATE. [Concomitant]
     Active Substance: SODIUM BICARBONATE
  4. CRESTOR [Concomitant]
     Active Substance: ROSUVASTATIN CALCIUM
  5. COLACE [Concomitant]
     Active Substance: DOCUSATE SODIUM
  6. COUMADINE [Concomitant]
     Active Substance: WARFARIN SODIUM
  7. ASPIRIN 81 [Concomitant]
     Active Substance: ASPIRIN
  8. PEPCID                             /00305201/ [Concomitant]
     Active Substance: ALUMINUM HYDROXIDE\MAGNESIUM CARBONATE
  9. FERROUS SULFATE. [Concomitant]
     Active Substance: FERROUS SULFATE
  10. GLUCOSAMINE + CHONDROITIN COMPLEX [Concomitant]
  11. CALCIUM 500+D [Concomitant]
     Active Substance: CALCIUM\VITAMIN D
  12. FISH OIL [Concomitant]
     Active Substance: FISH OIL
  13. ALLOPURINOL. [Concomitant]
     Active Substance: ALLOPURINOL
  14. VELTASSA [Suspect]
     Active Substance: PATIROMER
     Indication: HYPERKALAEMIA
     Dosage: 8.4 G, QD
     Route: 048
     Dates: start: 20160303

REACTIONS (1)
  - Diarrhoea [Unknown]
